FAERS Safety Report 12394709 (Version 1)
Quarter: 2016Q2

REPORT INFORMATION
  Report Type: Spontaneous
  Country: US (occurrence: US)
  Receive Date: 20160523
  Receipt Date: 20160523
  Transmission Date: 20160815
  Serious: No
  Sender: FDA-Public Use
  Company Number: US-NOVOPROD-447195

PATIENT
  Age: 9 Year
  Sex: Male

DRUGS (1)
  1. NORDITROPIN [Suspect]
     Active Substance: SOMATROPIN
     Indication: GROWTH HORMONE DEFICIENCY
     Route: 058
     Dates: start: 20150315, end: 20150326

REACTIONS (4)
  - Feeling hot [Recovered/Resolved]
  - Dizziness [Recovered/Resolved]
  - Injection site haemorrhage [Recovered/Resolved]
  - Headache [Recovered/Resolved]
